FAERS Safety Report 7816850-5 (Version None)
Quarter: 2011Q4

REPORT INFORMATION
  Report Type: 
  Country: None (occurrence: None)
  Receive Date: 20111013
  Receipt Date: 20111003
  Transmission Date: 20120403
  Serious: Yes (Death)
  Sender: FDA-Public Use
  Company Number: 1068278

PATIENT
  Age: 37 Year
  Sex: Female

DRUGS (4)
  1. EPINEPHRINE [Suspect]
     Indication: HYPOTENSION
  2. CISATRACURIUM BESYLATE [Concomitant]
  3. NOREPINEPHRINE BITARTRATE [Suspect]
     Indication: HYPOTENSION
  4. PROPOFOL [Suspect]
     Indication: SEDATION
     Dosage: SEE IMAGE
     Route: 041

REACTIONS (18)
  - CAROTID ARTERY OCCLUSION [None]
  - PULSELESS ELECTRICAL ACTIVITY [None]
  - PROPOFOL INFUSION SYNDROME [None]
  - HYPOTENSION [None]
  - RHABDOMYOLYSIS [None]
  - STAPHYLOCOCCUS TEST POSITIVE [None]
  - DIALYSIS [None]
  - RENAL FAILURE ACUTE [None]
  - CEREBRAL INFARCTION [None]
  - HAEMODYNAMIC INSTABILITY [None]
  - SEPSIS [None]
  - WHITE BLOOD CELL COUNT DECREASED [None]
  - ANEURYSM RUPTURED [None]
  - TACHYCARDIA [None]
  - LACTIC ACIDOSIS [None]
  - NO THERAPEUTIC RESPONSE [None]
  - TRANSAMINASES INCREASED [None]
  - CARDIAC ARREST [None]
